FAERS Safety Report 5113501-8 (Version None)
Quarter: 2006Q3

REPORT INFORMATION
  Report Type: 
  Country: None (occurrence: None)
  Receive Date: 20060920
  Receipt Date: 20060914
  Transmission Date: 20061208
  Serious: Yes (Hospitalization)
  Sender: FDA-Public Use
  Company Number: TPG2006A00442

PATIENT
  Sex: Male

DRUGS (2)
  1. LANSOPRAZOLE [Suspect]
     Indication: DRUG USE FOR UNKNOWN INDICATION
     Dosage: PER ORAL
     Route: 048
  2. NSAID'S (NSAID'S) [Concomitant]

REACTIONS (4)
  - CARDIAC FAILURE [None]
  - COLITIS COLLAGENOUS [None]
  - DIARRHOEA [None]
  - HYPERTENSION [None]
